FAERS Safety Report 4745758-7 (Version None)
Quarter: 2005Q3

REPORT INFORMATION
  Report Type: 
  Country: None (occurrence: None)
  Receive Date: 20050816
  Receipt Date: 20050805
  Transmission Date: 20060218
  Serious: Yes (Other)
  Sender: FDA-Public Use
  Company Number: JP-BRISTOL-MYERS SQUIBB COMPANY-13064522

PATIENT
  Sex: Male

DRUGS (6)
  1. BRIPLATIN [Suspect]
     Indication: BONE SARCOMA
     Route: 013
  2. RANDA [Suspect]
     Indication: BONE SARCOMA
     Route: 013
  3. METHOTREXATE [Concomitant]
  4. IFOMIDE [Concomitant]
  5. PEPLEO [Concomitant]
  6. ADRIACIN [Concomitant]

REACTIONS (1)
  - RHABDOMYOLYSIS [None]
